FAERS Safety Report 18747462 (Version 1)
Quarter: 2021Q1

REPORT INFORMATION
  Report Type: Spontaneous
  Country: HU (occurrence: HU)
  Receive Date: 20210115
  Receipt Date: 20210115
  Transmission Date: 20210419
  Serious: Yes (Death, Other)
  Sender: FDA-Public Use
  Company Number: HU-JNJFOC-20210119116

PATIENT
  Age: 57 Year
  Sex: Female

DRUGS (2)
  1. OPSUMIT [Suspect]
     Active Substance: MACITENTAN
     Indication: PULMONARY ARTERIAL HYPERTENSION
     Route: 048
  2. TADALAFIL. [Concomitant]
     Active Substance: TADALAFIL
     Indication: PULMONARY ARTERIAL HYPERTENSION
     Route: 065

REACTIONS (8)
  - Gastric varices [Unknown]
  - Renal failure [Unknown]
  - Sepsis [Fatal]
  - Gastrointestinal haemorrhage [Unknown]
  - Primary biliary cholangitis [Unknown]
  - Respiratory failure [Fatal]
  - Dyspnoea [Unknown]
  - Hepatic failure [Unknown]
